FAERS Safety Report 5074613-0 (Version None)
Quarter: 2006Q3

REPORT INFORMATION
  Report Type: 
  Country: None (occurrence: None)
  Receive Date: 20060808
  Receipt Date: 20050815
  Transmission Date: 20061208
  Serious: No
  Sender: FDA-Public Use
  Company Number: US-AMGEN-KDL146832

PATIENT
  Age: 82 Year
  Sex: Female
  Weight: 40 kg

DRUGS (1)
  1. PROCRIT [Suspect]
     Indication: ANAEMIA
     Route: 058
     Dates: start: 20020601

REACTIONS (5)
  - ALOPECIA [None]
  - FATIGUE [None]
  - HAEMATOCHEZIA [None]
  - OEDEMA PERIPHERAL [None]
  - PARAESTHESIA [None]
